FAERS Safety Report 15226218 (Version 1)
Quarter: 2018Q3

REPORT INFORMATION
  Report Type: Spontaneous
  Country: HR (occurrence: HR)
  Receive Date: 20180801
  Receipt Date: 20180801
  Transmission Date: 20181010
  Serious: Yes (Other)
  Sender: FDA-Public Use
  Company Number: HR-GLAXOSMITHKLINE-HR2018132789

PATIENT
  Age: 6 Year
  Sex: Male

DRUGS (1)
  1. FLIXOTIDE [Suspect]
     Active Substance: FLUTICASONE PROPIONATE
     Indication: PRODUCT USED FOR UNKNOWN INDICATION
     Dosage: 600 ?G, QD
     Route: 055
     Dates: start: 20180407, end: 20180407

REACTIONS (2)
  - Wrong dose [Recovered/Resolved]
  - Accidental poisoning [Unknown]

NARRATIVE: CASE EVENT DATE: 20180407
